FAERS Safety Report 7720860-6 (Version None)
Quarter: 2011Q3

REPORT INFORMATION
  Report Type: 
  Country: None (occurrence: None)
  Receive Date: 20110825
  Receipt Date: 20110810
  Transmission Date: 20111222
  Serious: Yes (Hospitalization)
  Sender: FDA-Public Use
  Company Number: 15948573

PATIENT
  Age: 56 Year
  Sex: Male

DRUGS (6)
  1. APIXABAN [Suspect]
     Indication: EMBOLISM
     Dosage: 10 MILLIGRAM 1 DAY
     Route: 048
     Dates: start: 20110705
  2. PLACEBO [Suspect]
     Indication: EMBOLISM
     Dates: start: 20110705
  3. ENOXAPARIN SODIUM [Suspect]
     Indication: EMBOLISM
     Route: 058
     Dates: start: 20110705, end: 20110709
  4. OMEPRAZOLE [Concomitant]
  5. WARFARIN SODIUM [Suspect]
     Indication: EMBOLISM
     Dosage: 2 MILLIGRAM 1 DAY
     Route: 048
     Dates: start: 20110705
  6. BISOPROLOL (BISOPROLOL FUMARATE) [Concomitant]

REACTIONS (3)
  - DEEP VEIN THROMBOSIS [None]
  - VENOUS INSUFFICIENCY [None]
  - INTERNATIONAL NORMALISED RATIO DECREASED [None]
